FAERS Safety Report 6763944-1 (Version None)
Quarter: 2010Q2

REPORT INFORMATION
  Report Type: 
  Country: None (occurrence: None)
  Receive Date: 20100610
  Receipt Date: 20100604
  Transmission Date: 20101027
  Serious: Yes (Hospitalization)
  Sender: FDA-Public Use
  Company Number: US-B.I. PHARMACEUTICALS,INC./RIDGEFIELD-2010-BP-06347BP

PATIENT
  Sex: Female

DRUGS (5)
  1. COMBIVENT [Suspect]
     Indication: ASTHMA
     Dosage: 18MCG/103MCG; 2PUFFS 4-6/DAY PRN
     Route: 055
     Dates: start: 20040101
  2. COMBIVENT [Suspect]
     Indication: BRONCHITIS
  3. ADVAIR DISKUS 100/50 [Concomitant]
     Indication: ASTHMA
  4. OXYCODONE [Concomitant]
     Indication: ARTHRITIS
  5. LUNESTA [Concomitant]
     Indication: SLEEP DISORDER

REACTIONS (4)
  - BRONCHITIS [None]
  - DYSPNOEA [None]
  - PNEUMONIA [None]
  - WHEEZING [None]
